FAERS Safety Report 9737196 (Version 1)
Quarter: 2013Q4

REPORT INFORMATION
  Report Type: Spontaneous
  Country: CH (occurrence: CH)
  Receive Date: 20131206
  Receipt Date: 20131206
  Transmission Date: 20140711
  Serious: Yes (Hospitalization, Congenital Anomaly, Other)
  Sender: FDA-Public Use
  Company Number: CH-009507513-1311CHE012876

PATIENT
  Age: 1 Day
  Sex: Male
  Weight: .81 kg

DRUGS (8)
  1. ELOCOM [Suspect]
     Indication: DERMATITIS ATOPIC
     Dosage: UNK
     Route: 064
     Dates: start: 20130702, end: 20130713
  2. DIOVAN [Suspect]
     Indication: ESSENTIAL HYPERTENSION
     Dosage: 160 MG, QD, WAS DISCONTINUED IN WEEK 8 OF PREGNANCY
     Route: 064
     Dates: end: 2013
  3. ADALAT CR [Suspect]
     Indication: ESSENTIAL HYPERTENSION
     Dosage: 60 MG, BID, STARTED IN WEEK 8 OF PREGNANCY
     Route: 064
     Dates: start: 2013
  4. TRANDATE [Suspect]
     Indication: HYPERTENSION
     Dosage: 100 MG, QD
     Route: 064
     Dates: start: 20130703, end: 20130713
  5. FRAGMIN [Suspect]
     Dosage: 5000 IU, QD, USED UNTIL AFTER BIRTH (EXACT DATE UNKNOWN)
     Route: 064
     Dates: start: 20130702, end: 2013
  6. MEPHAMESON [Suspect]
     Dosage: 16 MG, QD
     Route: 064
     Dates: start: 20130702, end: 20130703
  7. ALUCOL [Suspect]
     Dosage: 20 MG,1 TOTAL
     Route: 064
     Dates: start: 20130709, end: 20130709
  8. REDORMIN (HOPS (+) VALERIAN) [Suspect]
     Dosage: 1 TABLET INGESTED
     Route: 064
     Dates: start: 20130710, end: 20130710

REACTIONS (11)
  - Exposure during pregnancy [Recovered/Resolved]
  - Premature baby [Unknown]
  - Neonatal respiratory distress syndrome [Unknown]
  - Patent ductus arteriosus [Unknown]
  - Anaemia neonatal [Unknown]
  - Hyperbilirubinaemia [Unknown]
  - Hypoglycaemia neonatal [Unknown]
  - Inguinal hernia [Unknown]
  - Congenital genitourinary abnormality [Unknown]
  - Retinopathy [Unknown]
  - Tracheomalacia [Unknown]
